FAERS Safety Report 9079845 (Version 1)
Quarter: 2013Q1

REPORT INFORMATION
  Report Type: Spontaneous
  Country: DE (occurrence: DE)
  Receive Date: 20130215
  Receipt Date: 20130215
  Transmission Date: 20140127
  Serious: Yes (Hospitalization, Other)
  Sender: FDA-Public Use
  Company Number: DE-GLAXOSMITHKLINE-B0867839A

PATIENT
  Sex: Male

DRUGS (3)
  1. SUMATRIPTAN [Suspect]
     Indication: MIGRAINE
     Dates: end: 2000
  2. ZOLMITRIPTAN [Suspect]
     Indication: MIGRAINE
     Dates: start: 2000, end: 2008
  3. FROVATRIPTAN [Suspect]
     Indication: MIGRAINE
     Dates: start: 2000, end: 2008

REACTIONS (2)
  - Major depression [Unknown]
  - Intentional drug misuse [Unknown]
